FAERS Safety Report 11884711 (Version 1)
Quarter: 2016Q1

REPORT INFORMATION
  Report Type: Spontaneous
  Country: GB (occurrence: GB)
  Receive Date: 20160104
  Receipt Date: 20160104
  Transmission Date: 20160526
  Serious: Yes (Other)
  Sender: FDA-Public Use
  Company Number: GB-ACCORD-036796

PATIENT
  Age: 65 Year
  Sex: Male

DRUGS (1)
  1. MITOMYCIN. [Suspect]
     Active Substance: MITOMYCIN
     Indication: CHEMOTHERAPY
     Route: 033

REACTIONS (1)
  - Scrotal ulcer [Unknown]

NARRATIVE: CASE EVENT DATE: 201108
